FAERS Safety Report 5714618-7 (Version None)
Quarter: 2008Q2

REPORT INFORMATION
  Report Type: 
  Country: None (occurrence: None)
  Receive Date: 20080423
  Receipt Date: 20080422
  Transmission Date: 20081010
  Serious: Yes (Other)
  Sender: FDA-Public Use
  Company Number: B0512955A

PATIENT
  Age: 10 Year
  Sex: Male

DRUGS (8)
  1. RELENZA [Suspect]
     Indication: INFLUENZA
     Dosage: 10MG TWICE PER DAY
     Route: 055
     Dates: start: 20080310, end: 20080314
  2. ZESULAN [Concomitant]
     Dates: start: 20060901, end: 20080401
  3. TRANSAMIN [Concomitant]
     Dates: start: 20060901, end: 20080401
  4. ADONA [Concomitant]
     Dates: start: 20060901, end: 20080401
  5. FOSFOMYCIN [Concomitant]
     Dates: start: 20060901, end: 20080401
  6. ENTERONON-R [Concomitant]
     Dates: start: 20060901, end: 20080401
  7. POLARAMINE [Concomitant]
     Dates: start: 20060901, end: 20080401
  8. MUCODYNE [Concomitant]
     Dates: start: 20060901, end: 20080401

REACTIONS (5)
  - ABNORMAL BEHAVIOUR [None]
  - AMNESIA [None]
  - PSYCHIATRIC SYMPTOM [None]
  - PYREXIA [None]
  - TREMOR [None]
